FAERS Safety Report 8283614-0 (Version None)
Quarter: 2012Q2

REPORT INFORMATION
  Report Type: 
  Country: None (occurrence: None)
  Receive Date: 20120413
  Receipt Date: 20120402
  Transmission Date: 20120825
  Serious: Yes (Hospitalization)
  Sender: FDA-Public Use
  Company Number: DE-CELGENEUS-062-50794-12040188

PATIENT
  Age: 80 Year
  Sex: Male
  Weight: 75 kg

DRUGS (2)
  1. VIDAZA [Suspect]
     Dosage: 145 MILLIGRAM
     Route: 058
     Dates: start: 20120319, end: 20120327
  2. VIDAZA [Suspect]
     Dosage: 145 MILLIGRAM
     Route: 058
     Dates: start: 20120220, end: 20120228

REACTIONS (2)
  - PYREXIA [None]
  - SOMNOLENCE [None]
